FAERS Safety Report 5069815-3 (Version None)
Quarter: 2006Q3

REPORT INFORMATION
  Report Type: 
  Country: None (occurrence: None)
  Receive Date: 20060801
  Receipt Date: 20060801
  Transmission Date: 20061208
  Serious: Yes (Hospitalization)
  Sender: FDA-Public Use
  Company Number: None

PATIENT
  Age: 64 Year
  Sex: Female
  Weight: 66 kg

DRUGS (2)
  1. CUBICIN [Suspect]
     Indication: POSTOPERATIVE INFECTION
     Dosage: 300MG DAILY IV
     Route: 042
     Dates: start: 20060712, end: 20060721
  2. CUBICIN [Suspect]
     Indication: STAPHYLOCOCCAL INFECTION
     Dosage: 300MG DAILY IV
     Route: 042
     Dates: start: 20060712, end: 20060721

REACTIONS (1)
  - RHABDOMYOLYSIS [None]
